FAERS Safety Report 4559122-7 (Version None)
Quarter: 2005Q1

REPORT INFORMATION
  Report Type: 
  Country: None (occurrence: None)
  Receive Date: 20050119
  Receipt Date: 20050103
  Transmission Date: 20050727
  Serious: Yes (Other)
  Sender: FDA-Public Use
  Company Number: PHNU2005DE00455

PATIENT
  Age: 69 Year
  Sex: Male

DRUGS (1)
  1. VISUDYNE [Suspect]
     Indication: MACULAR DEGENERATION
     Dates: start: 20040226, end: 20040226

REACTIONS (3)
  - CHOROIDAL NEOVASCULARISATION [None]
  - METAMORPHOPSIA [None]
  - RETINAL HAEMORRHAGE [None]
